FAERS Safety Report 7456230-8 (Version None)
Quarter: 2011Q2

REPORT INFORMATION
  Report Type: 
  Country: None (occurrence: None)
  Receive Date: 20110503
  Receipt Date: 20110418
  Transmission Date: 20111010
  Serious: No
  Sender: FDA-Public Use
  Company Number: US-B.I. PHARMACEUTICALS,INC./RIDGEFIELD-2011-BP-11428BP

PATIENT
  Age: 44 Year
  Sex: Male

DRUGS (2)
  1. MULTI-VITAMIN [Concomitant]
     Indication: PROPHYLAXIS
     Route: 048
  2. ZANTAC 75 [Suspect]
     Indication: DYSPEPSIA
     Dosage: 75 MG
     Route: 048
     Dates: start: 20110417, end: 20110417

REACTIONS (1)
  - DYSPEPSIA [None]
